FAERS Safety Report 9230397 (Version 1)
Quarter: 2013Q2

REPORT INFORMATION
  Report Type: Spontaneous
  Country: US (occurrence: US)
  Receive Date: 20130415
  Receipt Date: 20130415
  Transmission Date: 20140414
  Serious: Yes (Other)
  Sender: FDA-Public Use
  Company Number: US-PFIZER INC-2013117770

PATIENT
  Age: 45 Year
  Sex: Female
  Weight: 67.12 kg

DRUGS (11)
  1. PRISTIQ [Suspect]
     Indication: DEPRESSION
     Dosage: 50 MG, 1X/DAY
     Route: 048
  2. FOLIC ACID [Concomitant]
     Indication: CROHN^S DISEASE
     Dosage: 2 MG, 1X/DAY
     Route: 048
  3. MAGNESIUM OXIDE [Concomitant]
     Indication: CROHN^S DISEASE
     Dosage: 400 MG, 1X/DAY
  4. IMURAN [Concomitant]
     Indication: CROHN^S DISEASE
     Dosage: 50 MG, 3X/DAY
  5. LOMOTIL [Concomitant]
     Indication: DIARRHOEA
     Dosage: UNK
  6. LASIX [Concomitant]
     Dosage: 20 MG, AS NEEDED
  7. INDERAL [Concomitant]
     Indication: MIGRAINE
     Dosage: 40 MG, 3X/DAY
  8. ZOFRAN [Concomitant]
     Indication: NAUSEA
     Dosage: 4 MG, AS NEEDED
  9. SYNTHROID [Concomitant]
     Indication: THYROID DISORDER
     Dosage: 225 UG, 1X/DAY
  10. NEURONTIN [Concomitant]
     Dosage: 600 MG, 3X/DAY
  11. KLONOPIN [Concomitant]
     Indication: PAIN
     Dosage: 1 MG, 2X/DAY

REACTIONS (1)
  - Arthropathy [Unknown]
